FAERS Safety Report 21690290 (Version 1)
Quarter: 2022Q4

REPORT INFORMATION
  Report Type: Spontaneous
  Country: CA (occurrence: CA)
  Receive Date: 20221206
  Receipt Date: 20221206
  Transmission Date: 20230112
  Serious: Yes (Other)
  Sender: FDA-Public Use
  Company Number: CA-009507513-1803CAN006569

PATIENT
  Age: 53 Year
  Sex: Male

DRUGS (9)
  1. SINGULAIR [Suspect]
     Active Substance: MONTELUKAST SODIUM
     Indication: Product used for unknown indication
     Dosage: UNK UNK, PRN
     Route: 065
  2. ZENHALE [Suspect]
     Active Substance: FORMOTEROL FUMARATE\MOMETASONE FUROATE
     Indication: Product used for unknown indication
     Dosage: UNK, UNK,BID 2 INHALATIONS MORNING AND EVENING (2 IN 1 D) FORMULATION: AEROSOL, METERED DOSE
     Route: 065
  3. ADVAIR HFA [Suspect]
     Active Substance: FLUTICASONE PROPIONATE\SALMETEROL XINAFOATE
     Indication: Product used for unknown indication
     Dosage: 1 PUFF(S), BID 1 DF, BID (2 EVERY 1 DAY(S))
     Route: 065
     Dates: end: 20150106
  4. NUCALA [Suspect]
     Active Substance: MEPOLIZUMAB
     Indication: Asthma
     Dosage: 100 MG, UNK
     Route: 058
     Dates: start: 201706
  5. ALBUTEROL SULFATE [Suspect]
     Active Substance: ALBUTEROL SULFATE
     Indication: Product used for unknown indication
     Dosage: UNK, PRN
     Route: 065
  6. UNIPHYL [Suspect]
     Active Substance: THEOPHYLLINE ANHYDROUS
     Indication: Product used for unknown indication
     Dosage: 400 MG, QD (1 EVERY 1 DAY(S))FORMULATION: (TABLET (EXTENDED- RELEASE)
     Route: 065
  7. ACTONEL [Concomitant]
     Active Substance: RISEDRONATE SODIUM
     Indication: Product used for unknown indication
     Dosage: 35 MG, UNK
     Route: 065
  8. CALCIUM D [CALCIUM CARBONATE;CALCIUM CITRATE;COLECALCIFEROL] [Concomitant]
     Indication: Product used for unknown indication
     Dosage: UNK, BID (2 EVERY 1 DAY(S))
     Route: 065
  9. CALCIUM D [CALCIUM CARBONATE;CALCIUM CITRATE;COLECALCIFEROL] [Concomitant]
     Dosage: UNK
     Route: 065

REACTIONS (27)
  - Asthma [Not Recovered/Not Resolved]
  - Bronchial hyperreactivity [Not Recovered/Not Resolved]
  - Bronchospasm [Recovering/Resolving]
  - Condition aggravated [Recovering/Resolving]
  - Cough [Recovering/Resolving]
  - Cushingoid [Not Recovered/Not Resolved]
  - Deafness [Not Recovered/Not Resolved]
  - Dizziness [Not Recovered/Not Resolved]
  - Drug dependence [Not Recovered/Not Resolved]
  - Dyspnoea [Not Recovered/Not Resolved]
  - Ear disorder [Not Recovered/Not Resolved]
  - Eosinophilia [Recovered/Resolved]
  - Gastrooesophageal reflux disease [Recovering/Resolving]
  - Glucose tolerance impaired [Not Recovered/Not Resolved]
  - Hypocalcaemia [Not Recovered/Not Resolved]
  - Infection [Not Recovered/Not Resolved]
  - Laryngeal disorder [Not Recovered/Not Resolved]
  - Nasal disorder [Not Recovered/Not Resolved]
  - Nasal polyps [Not Recovered/Not Resolved]
  - Otitis media [Not Recovered/Not Resolved]
  - Otitis media chronic [Not Recovered/Not Resolved]
  - Pulmonary function test abnormal [Not Recovered/Not Resolved]
  - Rhinitis [Recovered/Resolved]
  - Sinusitis [Not Recovered/Not Resolved]
  - Sputum discoloured [Recovering/Resolving]
  - Treatment noncompliance [Not Recovered/Not Resolved]
  - Wheezing [Recovering/Resolving]
